FAERS Safety Report 16962633 (Version 1)
Quarter: 2019Q4

REPORT INFORMATION
  Report Type: Spontaneous
  Country: US (occurrence: US)
  Receive Date: 20191025
  Receipt Date: 20191025
  Transmission Date: 20200122
  Serious: Yes (Hospitalization)
  Sender: FDA-Public Use
  Company Number: None

PATIENT
  Sex: Female

DRUGS (17)
  1. CYCLOBENZAPR [Concomitant]
     Active Substance: CYCLOBENZAPRINE
  2. FOLIC ACID. [Concomitant]
     Active Substance: FOLIC ACID
  3. HYDROXYCHLOR [Concomitant]
     Active Substance: HYDROXYCHLOROQUINE
  4. PREDNISONE. [Concomitant]
     Active Substance: PREDNISONE
  5. CLONAZEPAM. [Concomitant]
     Active Substance: CLONAZEPAM
  6. VITAMIN B12 [Concomitant]
     Active Substance: CYANOCOBALAMIN
  7. INVEGA SUSTENNA [Suspect]
     Active Substance: PALIPERIDONE PALMITATE
     Indication: SCHIZOAFFECTIVE DISORDER
     Dosage: ?          OTHER FREQUENCY:EVERY 4 WEEKS;?
     Route: 030
     Dates: start: 20180214
  8. DOK [Concomitant]
     Active Substance: DOCUSATE SODIUM
  9. LANSOPRAZOLE. [Concomitant]
     Active Substance: LANSOPRAZOLE
  10. PALIPERIDONE. [Concomitant]
     Active Substance: PALIPERIDONE
  11. POLYETH GLYC [Concomitant]
     Active Substance: POLYETHYLENE GLYCOLS
  12. FISH OIL [Concomitant]
     Active Substance: FISH OIL
  13. GABAPENTIN. [Concomitant]
     Active Substance: GABAPENTIN
  14. CALCI-CHEW [Concomitant]
  15. IRON [Concomitant]
     Active Substance: IRON
  16. MYCOPHENOLATE [Concomitant]
     Active Substance: MYCOPHENOLIC ACID
  17. TOPIRAMATE. [Concomitant]
     Active Substance: TOPIRAMATE

REACTIONS (1)
  - Hospitalisation [None]
